FAERS Safety Report 13561811 (Version 5)
Quarter: 2018Q1

REPORT INFORMATION
  Report Type: Report from Study
  Country: US (occurrence: US)
  Receive Date: 20170518
  Receipt Date: 20180329
  Transmission Date: 20180508
  Serious: Yes (Congenital Anomaly, Other)
  Sender: FDA-Public Use
  Company Number: US-TEVA-729438USA

PATIENT
  Sex: Male
  Weight: 92.16 kg

DRUGS (6)
  1. PROBIOTICA [Concomitant]
     Active Substance: PROBIOTICS NOS
     Indication: NUTRITIONAL SUPPLEMENTATION
     Dosage: UNKNOWN FORM STRENGTH
     Route: 065
  2. PROVIGIL [Suspect]
     Active Substance: MODAFINIL
     Indication: CATAPLEXY
     Dosage: 100 MILLIGRAM DAILY;
     Route: 065
     Dates: start: 2014
  3. DUREZOL [Concomitant]
     Active Substance: DIFLUPREDNATE
     Indication: EYE DISORDER
     Dosage: UNKNOWN FORM STRENGTH
     Route: 065
     Dates: start: 2009
  4. PROVIGIL [Suspect]
     Active Substance: MODAFINIL
     Indication: NARCOLEPSY
     Dosage: 400 MILLIGRAM DAILY;
     Route: 064
     Dates: start: 2014, end: 20170508
  5. FISH OIL [Concomitant]
     Active Substance: FISH OIL
     Indication: VITAMIN SUPPLEMENTATION
     Dosage: UNKNOWN FORM STRENGTH
     Route: 065
  6. PRENATAL VITAMINS [Concomitant]
     Active Substance: VITAMINS
     Indication: PREGNANCY
     Dosage: UNKNOWN FORM STRENGTH
     Route: 065
     Dates: start: 20170124

REACTIONS (3)
  - Cleft lip and palate [Unknown]
  - Foetal exposure during pregnancy [Unknown]
  - Polyhydramnios [Unknown]

NARRATIVE: CASE EVENT DATE: 20170817
